FAERS Safety Report 16706444 (Version 1)
Quarter: 2019Q3

REPORT INFORMATION
  Report Type: Spontaneous
  Country: US (occurrence: US)
  Receive Date: 20190815
  Receipt Date: 20190815
  Transmission Date: 20191004
  Serious: No
  Sender: FDA-Public Use
  Company Number: US-PACIRA-201400006

PATIENT
  Age: 32 Year
  Sex: Female

DRUGS (6)
  1. EXPAREL [Suspect]
     Active Substance: BUPIVACAINE
     Indication: POSTOPERATIVE ANALGESIA
     Dates: start: 20140415, end: 20140415
  2. LIDOCAINE. [Concomitant]
     Active Substance: LIDOCAINE
     Indication: POSTOPERATIVE ANALGESIA
     Dates: start: 20140415, end: 20140415
  3. LIDOCAINE. [Concomitant]
     Active Substance: LIDOCAINE
     Indication: POSTOPERATIVE ANALGESIA
     Dates: start: 20140417, end: 20140417
  4. EXPAREL [Suspect]
     Active Substance: BUPIVACAINE
     Indication: POSTOPERATIVE ANALGESIA
     Dates: start: 20140413, end: 20140413
  5. EXPAREL [Suspect]
     Active Substance: BUPIVACAINE
     Indication: POSTOPERATIVE ANALGESIA
     Dates: start: 20140417, end: 20140417
  6. LIDOCAINE. [Concomitant]
     Active Substance: LIDOCAINE
     Indication: POSTOPERATIVE ANALGESIA
     Dates: start: 20140413, end: 20140413

REACTIONS (1)
  - Inappropriate schedule of product administration [Unknown]

NARRATIVE: CASE EVENT DATE: 20140413
